FAERS Safety Report 15178285 (Version 1)
Quarter: 2018Q3

REPORT INFORMATION
  Report Type: Spontaneous
  Country: NO (occurrence: NO)
  Receive Date: 20180721
  Receipt Date: 20180721
  Transmission Date: 20181010
  Serious: Yes (Life-Threatening, Hospitalization, Other)
  Sender: FDA-Public Use
  Company Number: NO-AUROBINDO-AUR-APL-2010-01799

PATIENT
  Age: 75 Year
  Sex: Male

DRUGS (5)
  1. RAMIPRIL AUROBINDO 10MG TABLET [Suspect]
     Active Substance: RAMIPRIL
     Indication: CARDIAC FAILURE
     Dosage: 10 MG,ONCE A DAY,
     Route: 065
  2. BUMETANIDA [Suspect]
     Active Substance: BUMETANIDE
     Indication: CARDIAC FAILURE
     Dosage: 1.5 MG,ONCE A DAY,
     Route: 065
  3. DIGITOXIN [Concomitant]
     Active Substance: DIGITOXIN
     Indication: CARDIAC FAILURE
     Dosage: 50 ?G,ONCE A DAY,
     Route: 065
  4. METOPROLOL. [Suspect]
     Active Substance: METOPROLOL
     Indication: CARDIAC FAILURE
     Dosage: 100 MG,ONCE A DAY,
     Route: 065
  5. SPIRONOLACTONE. [Suspect]
     Active Substance: SPIRONOLACTONE
     Indication: CARDIAC FAILURE
     Dosage: 25 MG,ONCE A DAY,
     Route: 065

REACTIONS (20)
  - Haemodialysis [None]
  - Cardioactive drug level increased [None]
  - Acute kidney injury [Recovered/Resolved]
  - Metabolic acidosis [Recovered/Resolved]
  - Depressed level of consciousness [Recovered/Resolved]
  - Cardiac output decreased [None]
  - Hyperkalaemia [Recovered/Resolved]
  - Drug interaction [Unknown]
  - Hypotension [Recovered/Resolved]
  - Oliguria [Recovered/Resolved]
  - Mitral valve incompetence [None]
  - Renal failure [Recovered/Resolved]
  - Ventricular hypokinesia [None]
  - Haemoglobin decreased [None]
  - Peripheral coldness [Recovered/Resolved]
  - Hypovolaemia [None]
  - Cardiogenic shock [Recovered/Resolved]
  - Bradycardia [Recovered/Resolved]
  - Confusional state [Recovered/Resolved]
  - Ejection fraction decreased [None]
